FAERS Safety Report 7515605-9 (Version None)
Quarter: 2011Q2

REPORT INFORMATION
  Report Type: 
  Country: None (occurrence: None)
  Receive Date: 20110601
  Receipt Date: 20100722
  Transmission Date: 20111010
  Serious: No
  Sender: FDA-Public Use
  Company Number: US-PFIZER INC-2010064326

PATIENT
  Sex: Female

DRUGS (3)
  1. BC POWDER [Suspect]
     Dosage: UNK
  2. CHANTIX [Suspect]
     Dosage: UNK
  3. VALIUM [Concomitant]
     Dosage: UNK

REACTIONS (3)
  - AGITATION [None]
  - INSOMNIA [None]
  - FEELING JITTERY [None]
